FAERS Safety Report 8657622 (Version 2)
Quarter: 2014Q1

REPORT INFORMATION
  Report Type: Report from Study
  Country: CA (occurrence: CA)
  Receive Date: 20120710
  Receipt Date: 20140313
  Transmission Date: 20141002
  Serious: Yes (Death, Hospitalization, Other)
  Sender: FDA-Public Use
  Company Number: CA-ELI_LILLY_AND_COMPANY-CA201206009574

PATIENT
  Age: 63 Year
  Sex: Male

DRUGS (10)
  1. TERIPARATIDE [Suspect]
     Indication: OSTEOPOROSIS
     Dosage: 20 UG, QD
     Route: 058
     Dates: start: 20120227
  2. LYRICA [Concomitant]
     Route: 065
  3. ATORVASTATIN [Concomitant]
     Route: 065
  4. HYDROCHLOROTHIAZIDE [Concomitant]
     Route: 065
  5. VITAMIN D NOS [Concomitant]
     Dosage: 10000 IU, UNK
     Route: 065
  6. CALCIUM [Concomitant]
     Route: 065
  7. AMLODIPINE [Concomitant]
     Route: 065
  8. ADVAIR [Concomitant]
     Route: 065
  9. SPIRIVA [Concomitant]
     Route: 065
  10. SALBUTAMOL [Concomitant]
     Route: 065

REACTIONS (4)
  - Respiratory disorder [Fatal]
  - Intestinal obstruction [Recovered/Resolved]
  - Pneumonia [Recovered/Resolved]
  - Device misuse [Recovered/Resolved]
